FAERS Safety Report 14194528 (Version 1)
Quarter: 2017Q4

REPORT INFORMATION
  Report Type: Spontaneous
  Country: US (occurrence: US)
  Receive Date: 20171115
  Receipt Date: 20171115
  Transmission Date: 20180321
  Serious: Yes (Life-Threatening, Hospitalization, Disabling, Other)
  Sender: FDA-Public Use
  Company Number: None

PATIENT
  Age: 63 Year
  Sex: Female
  Weight: 90 kg

DRUGS (8)
  1. SYNTHROID [Concomitant]
     Active Substance: LEVOTHYROXINE SODIUM
  2. ASA [Concomitant]
     Active Substance: ASPIRIN
  3. MVI [Concomitant]
     Active Substance: VITAMINS
  4. HUMIRA [Suspect]
     Active Substance: ADALIMUMAB
     Indication: PSORIASIS
     Dosage: ?          OTHER FREQUENCY:WEEKLY;?
     Route: 030
     Dates: end: 20090808
  5. CARDIZEM [Concomitant]
     Active Substance: DILTIAZEM HYDROCHLORIDE
  6. METFORMIN [Concomitant]
     Active Substance: METFORMIN HYDROCHLORIDE
  7. POTASSIUM [Concomitant]
     Active Substance: POTASSIUM
  8. AVAPRO [Concomitant]
     Active Substance: IRBESARTAN

REACTIONS (6)
  - Hepatic steatosis [None]
  - Condition aggravated [None]
  - Neoplasm malignant [None]
  - Neuropathy peripheral [None]
  - Therapy cessation [None]
  - Cardiac failure [None]

NARRATIVE: CASE EVENT DATE: 20020101
